FAERS Safety Report 7813929-9 (Version None)
Quarter: 2011Q4

REPORT INFORMATION
  Report Type: 
  Country: None (occurrence: None)
  Receive Date: 20111014
  Receipt Date: 20111007
  Transmission Date: 20120403
  Serious: Yes (Other)
  Sender: FDA-Public Use
  Company Number: GB-PFIZER INC-2011240704

PATIENT
  Age: 66 Year
  Sex: Male

DRUGS (3)
  1. XALATAN [Suspect]
  2. PENICILLIN NOS [Suspect]
  3. AMOXIL [Suspect]

REACTIONS (5)
  - BLOOD PRESSURE INCREASED [None]
  - MALAISE [None]
  - NASOPHARYNGITIS [None]
  - ASTHENIA [None]
  - RESPIRATORY DISORDER [None]
